FAERS Safety Report 12373195 (Version 1)
Quarter: 2016Q2

REPORT INFORMATION
  Report Type: Spontaneous
  Country: US (occurrence: US)
  Receive Date: 20160516
  Receipt Date: 20160516
  Transmission Date: 20160815
  Serious: Yes (Other)
  Sender: FDA-Public Use
  Company Number: ADR-2015-01512

PATIENT
  Age: 44 Year
  Sex: Male

DRUGS (1)
  1. BACLOFEN. [Suspect]
     Active Substance: BACLOFEN
     Dosage: 443 MCG/DAY
     Route: 037

REACTIONS (2)
  - Muscle spasticity [Unknown]
  - No therapeutic response [Unknown]

NARRATIVE: CASE EVENT DATE: 201505
